FAERS Safety Report 22375874 (Version 1)
Quarter: 2023Q2

REPORT INFORMATION
  Report Type: Spontaneous
  Country: JP (occurrence: JP)
  Receive Date: 20230527
  Receipt Date: 20230527
  Transmission Date: 20230722
  Serious: Yes (Other)
  Sender: FDA-Public Use
  Company Number: JP-Accord-359833

PATIENT
  Age: 58 Year
  Sex: Female

DRUGS (8)
  1. CAPECITABINE [Suspect]
     Active Substance: CAPECITABINE
     Indication: Rectal cancer stage IV
     Dosage: TWICE DAILY FOR 14 DAYS
     Route: 048
     Dates: start: 202109
  2. OXALIPLATIN [Suspect]
     Active Substance: OXALIPLATIN
     Indication: Rectal cancer stage IV
     Dosage: ON DAY 1 AND EVERY 3 WEEKS
     Dates: start: 202109
  3. PALONOSETRON [Concomitant]
     Active Substance: PALONOSETRON
     Indication: Antiemetic supportive care
     Dosage: ON DAY 1
     Dates: start: 202109
  4. DEXAMETHASONE [Concomitant]
     Active Substance: DEXAMETHASONE
     Indication: Antiemetic supportive care
     Dosage: ON DAY 1
     Dates: start: 202109
  5. APREPITANT [Concomitant]
     Active Substance: APREPITANT
     Indication: Antiemetic supportive care
     Dosage: ON DAY 1
     Route: 048
     Dates: start: 202109
  6. DEXAMETHASONE [Concomitant]
     Active Substance: DEXAMETHASONE
     Indication: Antiemetic supportive care
     Dosage: ON DAY 2
     Route: 048
     Dates: start: 202109
  7. APREPITANT [Concomitant]
     Active Substance: APREPITANT
     Indication: Antiemetic supportive care
     Dosage: ON DAY 3
     Route: 048
     Dates: start: 202109
  8. OXALIPLATIN [Suspect]
     Active Substance: OXALIPLATIN
     Indication: Rectal cancer stage IV
     Dates: start: 202109

REACTIONS (1)
  - Dysaesthesia pharynx [Recovered/Resolved]
